FAERS Safety Report 4825027-7 (Version None)
Quarter: 2005Q4

REPORT INFORMATION
  Report Type: 
  Country: None (occurrence: None)
  Receive Date: 20051108
  Receipt Date: 20051028
  Transmission Date: 20060501
  Serious: Yes (Hospitalization)
  Sender: FDA-Public Use
  Company Number: SGBI-2005-00493

PATIENT
  Sex: 0

DRUGS (1)
  1. LANTHANUM CARBONATE(LANTHANUM CARBONATE) TABLET CHEWABLE [Suspect]
     Indication: HYPERPHOSPHATAEMIA
     Dosage: 750 MG DAILY, ORAL
     Route: 048
     Dates: start: 20050530, end: 20051026

REACTIONS (1)
  - ANGINA UNSTABLE [None]
